FAERS Safety Report 17859071 (Version 1)
Quarter: 2020Q2

REPORT INFORMATION
  Report Type: Spontaneous
  Country: US (occurrence: US)
  Receive Date: 20200604
  Receipt Date: 20200604
  Transmission Date: 20200714
  Serious: Yes (Other)
  Sender: FDA-Public Use
  Company Number: US-ROCHE-2613248

PATIENT
  Age: 23 Year
  Sex: Male

DRUGS (4)
  1. ACTILYSE [Suspect]
     Active Substance: ALTEPLASE
     Indication: PULMONARY EMBOLISM
     Route: 065
  2. NITROUS OXIDE. [Suspect]
     Active Substance: NITROUS OXIDE
     Indication: PRODUCT USED FOR UNKNOWN INDICATION
     Route: 065
  3. VANCOMYCIN [Concomitant]
     Active Substance: VANCOMYCIN
     Indication: PRODUCT USED FOR UNKNOWN INDICATION
  4. CEFEPIME [Concomitant]
     Active Substance: CEFEPIME HYDROCHLORIDE
     Indication: PRODUCT USED FOR UNKNOWN INDICATION

REACTIONS (2)
  - Haematoma [Unknown]
  - Antiphospholipid syndrome [Unknown]
